FAERS Safety Report 6279492-1 (Version None)
Quarter: 2009Q3

REPORT INFORMATION
  Report Type: 
  Country: None (occurrence: None)
  Receive Date: 20090723
  Receipt Date: 20090714
  Transmission Date: 20100115
  Serious: Yes (Hospitalization)
  Sender: FDA-Public Use
  Company Number: GB-PFIZER INC-2009239784

PATIENT

DRUGS (4)
  1. CYCLOKAPRON [Suspect]
     Indication: HAEMORRHAGE
     Dosage: 500 MG, 3X/DAY
     Route: 048
  2. HEPARIN SODIUM [Suspect]
  3. NORETHISTERONE [Suspect]
  4. FORMIC ACID [Suspect]

REACTIONS (1)
  - HAEMORRHAGE [None]
